FAERS Safety Report 5234298-7 (Version None)
Quarter: 2007Q1

REPORT INFORMATION
  Report Type: 
  Country: None (occurrence: None)
  Receive Date: 20070209
  Receipt Date: 20070131
  Transmission Date: 20070707
  Serious: Yes (Death, Life-Threatening, Hospitalization, Other)
  Sender: FDA-Public Use
  Company Number: GB-AVENTIS-200710969GDDC

PATIENT
  Age: 83 Year
  Sex: Female
  Weight: 76.6 kg

DRUGS (12)
  1. ARAVA [Suspect]
     Dosage: DOSE: 1 DOSAGE FORM
     Route: 048
     Dates: start: 20061130, end: 20070118
  2. ADCAL-D3 [Concomitant]
     Dosage: DOSE: 2 DOSAGE FORMS
     Dates: start: 20060825
  3. CALCICARD SR [Concomitant]
     Dosage: DOSE: 1 DOSAGE FORM
     Dates: start: 20060727
  4. CEPHALEXIN [Concomitant]
     Dosage: DOSE: 1 DOSAGE FORM
     Dates: end: 20061222
  5. ACETAMINOPHEN AND CODEINE PHOSPHATE [Concomitant]
     Dosage: DOSE: 2 DOSAGE FORMS
     Dates: start: 20070112
  6. FLUOXETINE HYDROCHLORIDE [Concomitant]
     Dosage: DOSE: 1 DOSAGE FORM
     Dates: start: 20061026
  7. IRBESARTAN [Concomitant]
     Dosage: DOSE: 1 DOSAGE FORM
     Dates: start: 20060710
  8. ISOSORBIDE MONONITRATE [Concomitant]
     Dosage: DOSE: UNK
     Dates: start: 20061101
  9. LEVOTHYROXINE SODIUM [Concomitant]
     Dosage: DOSE: 3 DOSAGE FORMS
     Dates: start: 20060710
  10. OMEPRAZOLE [Concomitant]
     Dosage: DOSE: 1 DOSAGE FORM
     Dates: start: 20060922
  11. PARACETAMOL [Concomitant]
     Dosage: DOSE: UNK
     Dates: start: 20061117
  12. TRAMADOL HCL [Concomitant]
     Dosage: DOSE: 2 DOSAGE FORMS
     Dates: start: 20060922

REACTIONS (2)
  - MYOCARDIAL INFARCTION [None]
  - VERTIGO [None]
